FAERS Safety Report 17608114 (Version 1)
Quarter: 2020Q1

REPORT INFORMATION
  Report Type: Spontaneous
  Country: NL (occurrence: GB)
  Receive Date: 20200331
  Receipt Date: 20200331
  Transmission Date: 20200409
  Serious: Yes (Hospitalization)
  Sender: FDA-Public Use
  Company Number: GB-FRESENIUS KABI-FK202003223

PATIENT
  Age: 44 Year
  Sex: Female

DRUGS (6)
  1. CARBOPLATIN (MANUFACTURER UNKNOWN) [Suspect]
     Active Substance: CARBOPLATIN
     Indication: BREAST CANCER
     Route: 065
  2. VENLAFAXINE [Concomitant]
     Active Substance: VENLAFAXINE HYDROCHLORIDE
     Indication: PRODUCT USED FOR UNKNOWN INDICATION
     Route: 065
  3. TRASTUZUMAB. [Suspect]
     Active Substance: TRASTUZUMAB
     Indication: PRODUCT USED FOR UNKNOWN INDICATION
     Route: 065
  4. QUETIAPINE. [Concomitant]
     Active Substance: QUETIAPINE
     Indication: PRODUCT USED FOR UNKNOWN INDICATION
     Route: 065
  5. DOCETAXEL (MANUFACTURER UNKNOWN) [Suspect]
     Active Substance: DOCETAXEL
     Indication: BREAST CANCER
     Route: 065
  6. PERTUZUMAB. [Suspect]
     Active Substance: PERTUZUMAB
     Indication: PRODUCT USED FOR UNKNOWN INDICATION
     Route: 065

REACTIONS (6)
  - Dizziness [Unknown]
  - Sepsis [Recovered/Resolved with Sequelae]
  - Acute kidney injury [Unknown]
  - Cough [Unknown]
  - Malaise [Unknown]
  - Dehydration [Unknown]
